FAERS Safety Report 19088357 (Version 1)
Quarter: 2021Q2

REPORT INFORMATION
  Report Type: Spontaneous
  Country: FR (occurrence: FR)
  Receive Date: 20210402
  Receipt Date: 20210402
  Transmission Date: 20210717
  Serious: Yes (Hospitalization)
  Sender: FDA-Public Use
  Company Number: FR-PFIZER INC-2021340862

PATIENT
  Age: 39 Year
  Sex: Female
  Weight: 70 kg

DRUGS (7)
  1. SERESTA [Suspect]
     Active Substance: OXAZEPAM
     Dosage: UNK
     Route: 048
     Dates: start: 20210314, end: 20210314
  2. ABILIFY [Suspect]
     Active Substance: ARIPIPRAZOLE
     Indication: SCHIZOPHRENIA
     Dosage: 30 MG (2 DOSE FORM), 1X/DAY
     Route: 048
  3. OXCARBAZEPINE. [Suspect]
     Active Substance: OXCARBAZEPINE
     Dosage: 300 MG, 1X/DAY
     Route: 048
  4. SUBUTEX [Suspect]
     Active Substance: BUPRENORPHINE HYDROCHLORIDE
     Indication: PRODUCT SUBSTITUTION
     Dosage: 4 MG, 1X/DAY
     Route: 048
  5. SERTRALINE HCL [Suspect]
     Active Substance: SERTRALINE HYDROCHLORIDE
     Indication: DEPRESSION
     Dosage: 50 MG, 1X/DAY
     Route: 048
  6. LOXAPIN [BUSPIRONE HYDROCHLORIDE] [Suspect]
     Active Substance: BUSPIRONE HYDROCHLORIDE
     Indication: SCHIZOPHRENIA
     Dosage: 50 MG, 1X/DAY
     Route: 048
  7. COCAINE [Suspect]
     Active Substance: COCAINE
     Dosage: 1 G, SINGLE
     Route: 065
     Dates: start: 20210314, end: 20210314

REACTIONS (4)
  - Rhabdomyolysis [Recovering/Resolving]
  - Hypotension [Recovered/Resolved]
  - Poisoning deliberate [Recovered/Resolved]
  - Oxygen saturation decreased [Recovered/Resolved]

NARRATIVE: CASE EVENT DATE: 20210314
